FAERS Safety Report 19768220 (Version 2)
Quarter: 2021Q3

REPORT INFORMATION
  Report Type: Spontaneous
  Country: CN (occurrence: CN)
  Receive Date: 20210831
  Receipt Date: 20210901
  Transmission Date: 20211014
  Serious: Yes (Disabling)
  Sender: FDA-Public Use
  Company Number: CN-SA-2021SA187595

PATIENT
  Sex: Female

DRUGS (3)
  1. DUPIXENT [Suspect]
     Active Substance: DUPILUMAB
     Indication: DERMATITIS ATOPIC
     Dosage: UNK
     Route: 065
     Dates: start: 20210318
  2. COVID?19 VACCINE [Concomitant]
     Indication: COVID-19 IMMUNISATION
     Dosage: UNK
  3. MOMETASONE FUROATE. [Concomitant]
     Active Substance: MOMETASONE FUROATE

REACTIONS (11)
  - Rhinitis [Not Recovered/Not Resolved]
  - Pruritus [Not Recovered/Not Resolved]
  - Rash erythematous [Not Recovered/Not Resolved]
  - Sensory disturbance [Not Recovered/Not Resolved]
  - Off label use [Unknown]
  - Rash pruritic [Not Recovered/Not Resolved]
  - Impaired work ability [Not Recovered/Not Resolved]
  - Skin lesion [Not Recovered/Not Resolved]
  - Pyrexia [Not Recovered/Not Resolved]
  - Pigmentation disorder [Unknown]
  - Swelling [Not Recovered/Not Resolved]

NARRATIVE: CASE EVENT DATE: 2021
